FAERS Safety Report 7585294-6 (Version None)
Quarter: 2011Q2

REPORT INFORMATION
  Report Type: 
  Country: None (occurrence: None)
  Receive Date: 20110623
  Receipt Date: 20110608
  Transmission Date: 20111010
  Serious: Yes (Other)
  Sender: FDA-Public Use
  Company Number: TPA2011A03018

PATIENT
  Age: 52 Year
  Sex: Female
  Weight: 136.0791 kg

DRUGS (3)
  1. CORTICOSTEROID (CORTICOSTERIOD NOS) [Concomitant]
  2. LEVEMIR [Concomitant]
  3. ACTOS [Suspect]
     Indication: TYPE 2 DIABETES MELLITUS
     Dosage: 15 MG, 1 IN 1 D, PER ORAL
     Route: 048
     Dates: start: 20080608

REACTIONS (3)
  - OSTEOARTHRITIS [None]
  - BLOOD GLUCOSE INCREASED [None]
  - VAGINAL CANCER [None]
